FAERS Safety Report 18125352 (Version 1)
Quarter: 2020Q3

REPORT INFORMATION
  Report Type: Spontaneous
  Country: DE (occurrence: DE)
  Receive Date: 20200807
  Receipt Date: 20200807
  Transmission Date: 20201103
  Serious: Yes (Hospitalization)
  Sender: FDA-Public Use
  Company Number: DE-ALLERGAN-2029188US

PATIENT
  Sex: Female
  Weight: 100 kg

DRUGS (1)
  1. CITALOPRAM HYDROBROMIDE ? BP [Suspect]
     Active Substance: CITALOPRAM HYDROBROMIDE
     Indication: SUICIDAL IDEATION
     Dosage: 30 DF, QD
     Route: 048
     Dates: start: 20200225

REACTIONS (4)
  - Intentional overdose [Unknown]
  - Toxicity to various agents [Unknown]
  - Nausea [Unknown]
  - Product administered to patient of inappropriate age [Unknown]

NARRATIVE: CASE EVENT DATE: 20200225
